FAERS Safety Report 23841021 (Version 1)
Quarter: 2024Q2

REPORT INFORMATION
  Report Type: Spontaneous
  Country: US (occurrence: US)
  Receive Date: 20240510
  Receipt Date: 20240510
  Transmission Date: 20240716
  Serious: No
  Sender: FDA-Public Use
  Company Number: US-TLX-2024000156

PATIENT
  Age: 88 Year
  Sex: Male
  Weight: 93.89 kg

DRUGS (1)
  1. ILLUCCIX [Suspect]
     Active Substance: GALLIUM GA-68 GOZETOTIDE
     Indication: Product used for unknown indication
     Dosage: GAUGE SIZE: 22G, ?INJECTION SITE: LT HAND, ?INJECTION SPEED: AT NORMAL RATE
     Route: 040
     Dates: start: 20230804, end: 20230804

REACTIONS (1)
  - Injection site pain [Unknown]

NARRATIVE: CASE EVENT DATE: 20230804
